FAERS Safety Report 6601858-8 (Version None)
Quarter: 2010Q1

REPORT INFORMATION
  Report Type: 
  Country: None (occurrence: None)
  Receive Date: 20100225
  Receipt Date: 20100217
  Transmission Date: 20100710
  Serious: Yes (Hospitalization)
  Sender: FDA-Public Use
  Company Number: FR-KINGPHARMUSA00001-K201000176

PATIENT
  Age: 83 Year
  Sex: Female

DRUGS (6)
  1. ALTACE [Suspect]
     Dosage: 10 MG, QD
     Route: 048
     Dates: end: 20090729
  2. LASILIX [Suspect]
     Dosage: 40 MG, QD
     Route: 048
     Dates: end: 20090729
  3. ALDACTONE [Suspect]
     Dosage: 25 MG, QD
     Route: 048
     Dates: end: 20090729
  4. ALLOPURINOL [Concomitant]
     Dosage: UNK
  5. PREVISCAN [Concomitant]
     Dosage: UNK
  6. CARDENSIEL [Concomitant]
     Dosage: UNK

REACTIONS (6)
  - DEHYDRATION [None]
  - DIARRHOEA [None]
  - HYPERKALAEMIA [None]
  - HYPERPHOSPHATAEMIA [None]
  - METABOLIC ACIDOSIS [None]
  - RENAL FAILURE ACUTE [None]
